FAERS Safety Report 10128533 (Version 1)
Quarter: 2014Q2

REPORT INFORMATION
  Report Type: Spontaneous
  Country: ES (occurrence: ES)
  Receive Date: 20140428
  Receipt Date: 20140428
  Transmission Date: 20141212
  Serious: Yes (Hospitalization, Other)
  Sender: FDA-Public Use
  Company Number: ES-ACCORD-023227

PATIENT
  Age: 69 Year
  Sex: Female

DRUGS (3)
  1. PACLITAXEL ACCORD HEALTHCARE ITALIA [Suspect]
     Indication: BREAST NEOPLASM
     Dosage: 6 MG/ML
     Route: 042
     Dates: start: 20130830, end: 20131104
  2. HERCEPTIN [Suspect]
     Indication: INVASIVE DUCTAL BREAST CARCINOMA
     Route: 042
     Dates: start: 20130830, end: 20131104
  3. GABAPENTIN [Concomitant]
     Indication: NEUROTOXICITY

REACTIONS (7)
  - Acute interstitial pneumonitis [Recovered/Resolved]
  - Neurotoxicity [Unknown]
  - Malaise [Unknown]
  - Cardiac failure congestive [Unknown]
  - Mitral valve incompetence [Unknown]
  - Pyrexia [Unknown]
  - Cardiotoxicity [Recovered/Resolved]
